FAERS Safety Report 24762239 (Version 1)
Quarter: 2024Q4

REPORT INFORMATION
  Report Type: Spontaneous
  Country: US (occurrence: US)
  Receive Date: 20241221
  Receipt Date: 20241221
  Transmission Date: 20250115
  Serious: No
  Sender: SANOFI AVENTIS
  Company Number: US-SA-2024SA375073

PATIENT
  Age: 18 Year
  Sex: Female
  Weight: 61.36 kg

DRUGS (6)
  1. DUPIXENT [Suspect]
     Active Substance: DUPILUMAB
     Indication: Dermatitis atopic
     Dosage: 300 MG, QOW
     Route: 058
  2. EPIPEN [Concomitant]
     Active Substance: EPINEPHRINE
  3. VITAMINS NOS [Concomitant]
     Active Substance: VITAMINS
     Dosage: QD
  4. SINGULAIR [Concomitant]
     Active Substance: MONTELUKAST SODIUM
  5. XYZAL [Concomitant]
     Active Substance: LEVOCETIRIZINE DIHYDROCHLORIDE
  6. IBUPROFEN [Concomitant]
     Active Substance: IBUPROFEN

REACTIONS (1)
  - Injection site pain [Unknown]

NARRATIVE: CASE EVENT DATE: 20241212
